FAERS Safety Report 9357681 (Version 1)
Quarter: 2013Q2

REPORT INFORMATION
  Report Type: Spontaneous
  Country: US (occurrence: None)
  Receive Date: 20130619
  Receipt Date: 20130619
  Transmission Date: 20140414
  Serious: Yes (Death)
  Sender: FDA-Public Use
  Company Number: None

PATIENT
  Age: 26 Year
  Sex: Male

DRUGS (1)
  1. OLANZAPINE 10MG [Suspect]
     Route: 030
     Dates: start: 20130311, end: 20130311

REACTIONS (2)
  - Unresponsive to stimuli [None]
  - Respiratory depression [None]
